FAERS Safety Report 16775486 (Version 2)
Quarter: 2019Q3

REPORT INFORMATION
  Report Type: Report from Study
  Country: JP (occurrence: JP)
  Receive Date: 20190905
  Receipt Date: 20190917
  Transmission Date: 20191005
  Serious: Yes (Hospitalization, Other)
  Sender: FDA-Public Use
  Company Number: JP-JNJFOC-20190830398

PATIENT
  Sex: Female

DRUGS (4)
  1. DOXORUBICIN HYDROCHLORIDE. [Suspect]
     Active Substance: DOXORUBICIN HYDROCHLORIDE
     Indication: BREAST CANCER
     Dosage: EVERY 14 DAYS
     Route: 065
  2. CYCLOPHOSPHAMIDE. [Suspect]
     Active Substance: CYCLOPHOSPHAMIDE
     Indication: BREAST CANCER
     Dosage: EVERY 14 DAYS
     Route: 065
  3. DOXIL [Suspect]
     Active Substance: DOXORUBICIN HYDROCHLORIDE
     Indication: BREAST CANCER
     Dosage: EVERY 14 DAYS
     Route: 065
  4. PEGFILGRASTIM [Suspect]
     Active Substance: PEGFILGRASTIM
     Indication: BREAST CANCER
     Dosage: ON DAY 3 OF EVERY DDAC-P CYCLE
     Route: 058

REACTIONS (11)
  - Lung infection [Recovered/Resolved]
  - Arthritis [Unknown]
  - Pyrexia [Recovered/Resolved]
  - Upper respiratory tract infection [Unknown]
  - Nausea [Unknown]
  - Pneumonitis [Recovered/Resolved]
  - Lymphopenia [Unknown]
  - Peripheral sensory neuropathy [Recovering/Resolving]
  - Neutropenia [Unknown]
  - Dizziness [Recovered/Resolved]
  - Myalgia [Unknown]
